FAERS Safety Report 7998744-8 (Version None)
Quarter: 2011Q4

REPORT INFORMATION
  Report Type: 
  Country: None (occurrence: None)
  Receive Date: 20111216
  Receipt Date: 20111216
  Transmission Date: 20120403
  Serious: Yes (Disabling)
  Sender: FDA-Public Use
  Company Number: 1022556-2011-00068

PATIENT
  Age: 32 Year
  Sex: Female

DRUGS (1)
  1. ICY HOT BACK PATCH - GENERIC [Suspect]
     Indication: MYALGIA
     Dosage: TOPICAL
     Route: 061

REACTIONS (3)
  - IMPAIRED HEALING [None]
  - CHEMICAL BURN OF SKIN [None]
  - SKIN DISORDER [None]
